FAERS Safety Report 18972653 (Version 1)
Quarter: 2021Q1

REPORT INFORMATION
  Report Type: Spontaneous
  Country: US (occurrence: US)
  Receive Date: 20210304
  Receipt Date: 20210304
  Transmission Date: 20210420
  Serious: No
  Sender: FDA-Public Use
  Company Number: None

PATIENT
  Sex: Female

DRUGS (1)
  1. CAPECITABINE 150 MG 500 MG NOVADOZ PHRMACEUTICALS [Suspect]
     Active Substance: CAPECITABINE
     Indication: RECTOSIGMOID CANCER
     Dosage: 150MG/500 MG ORAL?TAKE 2 TABLETS (1000 MG) WITH ? 150 MG (300MG) TWICE DAILY  ON MONDAR? FRIDAY.
     Route: 048
     Dates: start: 20210222

REACTIONS (1)
  - Rash macular [None]
